FAERS Safety Report 10066849 (Version 1)
Quarter: 2014Q2

REPORT INFORMATION
  Report Type: Report from Study
  Country: MX (occurrence: MX)
  Receive Date: 20140408
  Receipt Date: 20140408
  Transmission Date: 20141212
  Serious: Yes (Death)
  Sender: FDA-Public Use
  Company Number: PHHY2014MX042553

PATIENT
  Age: 87 Year
  Sex: Female

DRUGS (1)
  1. EXELON PATCH [Suspect]
     Indication: PARKINSON^S DISEASE
     Dosage: 1 DF, DAILY (ONE 9.5 MG/10 CM2 PATCH, DAILY)
     Route: 062
     Dates: start: 20131023

REACTIONS (1)
  - Death [Fatal]
